FAERS Safety Report 12466233 (Version 1)
Quarter: 2016Q2

REPORT INFORMATION
  Report Type: Report from Study
  Country: BE (occurrence: BE)
  Receive Date: 20160614
  Receipt Date: 20160614
  Transmission Date: 20160815
  Serious: Yes (Death)
  Sender: FDA-Public Use
  Company Number: BE-ABBVIE-14P-013-1201422-00

PATIENT
  Sex: Male

DRUGS (15)
  1. DUODOPA [Suspect]
     Active Substance: CARBIDOPA\LEVODOPA
     Dosage: AM DOSE=4.5ML, CD=3.8ML/H FOR 16HRS, NE=2.5ML/H FOR 8HRS AND ED=2ML
     Route: 050
     Dates: start: 20131004, end: 20140205
  2. PROLOPA [Concomitant]
     Active Substance: BENSERAZIDE\LEVODOPA
     Indication: PARKINSON^S DISEASE
  3. TEMESTA [Concomitant]
     Active Substance: LORAZEPAM
     Indication: PRODUCT USED FOR UNKNOWN INDICATION
  4. CITALOPRAM [Concomitant]
     Active Substance: CITALOPRAM HYDROBROMIDE
     Indication: PRODUCT USED FOR UNKNOWN INDICATION
  5. LIORESAL [Concomitant]
     Active Substance: BACLOFEN
     Indication: PRODUCT USED FOR UNKNOWN INDICATION
  6. DUODOPA [Suspect]
     Active Substance: CARBIDOPA\LEVODOPA
     Dosage: DOSAGE CONTINUOUSLY MONITORED AND ADJUSTED
     Route: 050
     Dates: start: 20120119, end: 20131004
  7. DUODOPA [Suspect]
     Active Substance: CARBIDOPA\LEVODOPA
     Dosage: DOSES CONTINUOUSLY MONITORED AND ADAPTED
     Route: 050
     Dates: start: 20151105, end: 20160215
  8. ATENOLOL. [Concomitant]
     Active Substance: ATENOLOL
     Indication: PRODUCT USED FOR UNKNOWN INDICATION
  9. LORMETAZEPAM [Concomitant]
     Active Substance: LORMETAZEPAM
     Indication: PRODUCT USED FOR UNKNOWN INDICATION
  10. DUODOPA [Suspect]
     Active Substance: CARBIDOPA\LEVODOPA
     Dosage: AM = 4.5 ML, CD = 3.9 ML/H DURING 16H, ED = 2 ML, ND = 2.5 ML/H DURING 8H
     Route: 050
     Dates: start: 20160215
  11. PANTOMED [Concomitant]
     Active Substance: DEXPANTHENOL
     Indication: PRODUCT USED FOR UNKNOWN INDICATION
  12. BACLOFEN. [Concomitant]
     Active Substance: BACLOFEN
     Indication: PRODUCT USED FOR UNKNOWN INDICATION
  13. DUODOPA [Suspect]
     Active Substance: CARBIDOPA\LEVODOPA
     Indication: PARKINSON^S DISEASE
     Dosage: AM DOSE=4ML, CD=4ML/H FOR 16HRS, ND=2.5ML/H FOR 8HRS AND ED=2ML
     Route: 050
     Dates: start: 20120109, end: 20120119
  14. DUODOPA [Suspect]
     Active Substance: CARBIDOPA\LEVODOPA
     Dosage: AM DOSE=4.5ML, CD=3.5ML/H FOR 16HRS, ND=2.5ML/H FOR 8HRS AND ED=2ML
     Route: 050
     Dates: start: 20140205, end: 20140730
  15. DUODOPA [Suspect]
     Active Substance: CARBIDOPA\LEVODOPA
     Dosage: AM = 4.5 ML, CD = 3.8 ML/H DURING 16H, ED = 2 ML, ND = 2.5 ML/H DURING 8H
     Route: 050
     Dates: start: 20140730, end: 20151105

REACTIONS (8)
  - Muscle spasms [Unknown]
  - Abnormal behaviour [Not Recovered/Not Resolved]
  - General physical health deterioration [Fatal]
  - Speech disorder [Unknown]
  - Weight increased [Recovered/Resolved]
  - Weight decreased [Not Recovered/Not Resolved]
  - Dystonia [Not Recovered/Not Resolved]
  - Hypophagia [Not Recovered/Not Resolved]
